FAERS Safety Report 8556758-3 (Version None)
Quarter: 2012Q3

REPORT INFORMATION
  Report Type: 
  Country: None (occurrence: None)
  Receive Date: 20120801
  Receipt Date: 20120723
  Transmission Date: 20120928
  Serious: Yes (Hospitalization, Other)
  Sender: FDA-Public Use
  Company Number: US-BAYER-2012-073870

PATIENT
  Sex: Female

DRUGS (1)
  1. YASMIN [Suspect]
     Dosage: UNK
     Dates: start: 20091201, end: 20110314

REACTIONS (7)
  - PULMONARY EMBOLISM [None]
  - PAIN [None]
  - INJURY [None]
  - VENOUS INJURY [None]
  - DEEP VEIN THROMBOSIS [None]
  - EMBOLISM [None]
  - EMOTIONAL DISTRESS [None]
